FAERS Safety Report 7422684-6 (Version None)
Quarter: 2011Q2

REPORT INFORMATION
  Report Type: 
  Country: None (occurrence: None)
  Receive Date: 20110419
  Receipt Date: 20110407
  Transmission Date: 20111010
  Serious: Yes (Other)
  Sender: FDA-Public Use
  Company Number: US-ELI_LILLY_AND_COMPANY-US201104002757

PATIENT
  Sex: Female

DRUGS (4)
  1. FLUOXETINE [Concomitant]
  2. XANAX [Concomitant]
  3. ZYPREXA [Suspect]
     Indication: BIPOLAR DISORDER
  4. ABILIFY [Concomitant]

REACTIONS (1)
  - WEIGHT INCREASED [None]
